FAERS Safety Report 22070981 (Version 1)
Quarter: 2023Q1

REPORT INFORMATION
  Report Type: Other
  Country: US (occurrence: None)
  Receive Date: 20230307
  Receipt Date: 20230307
  Transmission Date: 20230418
  Serious: Yes (Hospitalization)
  Sender: FDA-Public Use
  Company Number: US-ROCHE-3299389

PATIENT
  Age: 46 Year
  Sex: Female

DRUGS (8)
  1. OCREVUS [Suspect]
     Active Substance: OCRELIZUMAB
     Indication: Multiple sclerosis
     Dosage: 500ML NS, OVER A MINIMUM OF 3.5 HOURS
     Route: 065
  2. CODEINE [Concomitant]
     Active Substance: CODEINE
  3. DROPERIDOL [Concomitant]
     Active Substance: DROPERIDOL
  4. METFORMIN [Concomitant]
     Active Substance: METFORMIN HYDROCHLORIDE
  5. LOSARTAN [Concomitant]
     Active Substance: LOSARTAN
  6. AMLODIPINE [Concomitant]
     Active Substance: AMLODIPINE BESYLATE
  7. OMEPRAZOLE [Concomitant]
     Active Substance: OMEPRAZOLE
  8. CYMBALTA [Concomitant]
     Active Substance: DULOXETINE HYDROCHLORIDE

REACTIONS (1)
  - COVID-19 [Recovered/Resolved]

NARRATIVE: CASE EVENT DATE: 20200101
